FAERS Safety Report 7378506-5 (Version None)
Quarter: 2011Q1

REPORT INFORMATION
  Report Type: 
  Country: None (occurrence: None)
  Receive Date: 20110328
  Receipt Date: 20101220
  Transmission Date: 20110831
  Serious: Yes (Other)
  Sender: FDA-Public Use
  Company Number: US-AMGEN-USASP2010010062

PATIENT
  Age: 78 Year
  Sex: Female

DRUGS (5)
  1. ARANESP [Suspect]
     Indication: PREOPERATIVE CARE
     Dosage: 80 MG, QOD
     Route: 058
     Dates: start: 20101101
  2. IRON [Concomitant]
  3. VITAMIN B12                        /00056201/ [Concomitant]
  4. MULTI-VITAMINS [Concomitant]
  5. FOLIC ACID [Concomitant]

REACTIONS (4)
  - REFUSAL OF TREATMENT BY PATIENT [None]
  - POST PROCEDURAL HAEMORRHAGE [None]
  - SEPSIS [None]
  - ANAEMIA [None]
